FAERS Safety Report 7161243-X (Version None)
Quarter: 2010Q4

REPORT INFORMATION
  Report Type: 
  Country: None (occurrence: None)
  Receive Date: 20101210
  Receipt Date: 20101210
  Transmission Date: 20110411
  Serious: Yes (Other)
  Sender: FDA-Public Use
  Company Number: None

PATIENT
  Age: 54 Year
  Sex: Female

DRUGS (2)
  1. COMBO (PEGYLATED INTERFERON-RIBAVIRIN) [Suspect]
     Indication: HEPATITIS C
     Dosage: NOT PROVIDED
  2. COMBO (TELAPREVIR, PEGYLATED INTEFERON, RIBAVIRIN) [Suspect]

REACTIONS (8)
  - AFFECT LABILITY [None]
  - ALOPECIA [None]
  - AMNESIA [None]
  - CHILLS [None]
  - FATIGUE [None]
  - NAUSEA [None]
  - PAIN [None]
  - WEIGHT DECREASED [None]
